FAERS Safety Report 5733276-9 (Version None)
Quarter: 2008Q2

REPORT INFORMATION
  Report Type: 
  Country: None (occurrence: None)
  Receive Date: 20080509
  Receipt Date: 20080507
  Transmission Date: 20081010
  Serious: Yes (Other)
  Sender: FDA-Public Use
  Company Number: B0515670A

PATIENT
  Age: 46 Year
  Sex: Male

DRUGS (2)
  1. IMIGRAN [Suspect]
     Indication: CLUSTER HEADACHE
     Dosage: 6MG FOUR TIMES PER DAY
     Route: 058
     Dates: start: 20020701, end: 20020713
  2. LITHIUM CARBONATE [Concomitant]
     Indication: CLUSTER HEADACHE
     Dosage: 900MG PER DAY
     Route: 048
     Dates: start: 20020701, end: 20020904

REACTIONS (5)
  - ACROPHOBIA [None]
  - COGNITIVE DISORDER [None]
  - DISORIENTATION [None]
  - HALLUCINATION [None]
  - PERSONALITY CHANGE [None]
